FAERS Safety Report 21040184 (Version 6)
Quarter: 2022Q3

REPORT INFORMATION
  Report Type: Report from Study
  Country: US (occurrence: US)
  Receive Date: 20220704
  Receipt Date: 20220930
  Transmission Date: 20221027
  Serious: No
  Sender: FDA-Public Use
  Company Number: US-NOVARTISTESTPH-NVSC2022US151641

PATIENT
  Sex: Male

DRUGS (4)
  1. ENTRESTO [Suspect]
     Active Substance: SACUBITRIL\VALSARTAN
     Indication: Product used for unknown indication
     Dosage: 1 DOSAGE FORM, BID (24/26 MG)
     Route: 048
     Dates: start: 202205
  2. ENTRESTO [Suspect]
     Active Substance: SACUBITRIL\VALSARTAN
     Dosage: UNK
     Route: 065
  3. ENTRESTO [Suspect]
     Active Substance: SACUBITRIL\VALSARTAN
     Dosage: 24 MG, BID
     Route: 065
  4. ENTRESTO [Suspect]
     Active Substance: SACUBITRIL\VALSARTAN
     Dosage: 24 MG, BID
     Route: 065

REACTIONS (15)
  - Constipation [Unknown]
  - Joint instability [Unknown]
  - Oedema peripheral [Unknown]
  - Productive cough [Not Recovered/Not Resolved]
  - Movement disorder [Not Recovered/Not Resolved]
  - Sleep disorder [Unknown]
  - Arthralgia [Not Recovered/Not Resolved]
  - Nasopharyngitis [Recovered/Resolved]
  - Asthenia [Unknown]
  - Pain [Unknown]
  - Back pain [Unknown]
  - Contusion [Unknown]
  - Musculoskeletal disorder [Unknown]
  - Fatigue [Unknown]
  - Drug ineffective [Unknown]
